FAERS Safety Report 21034165 (Version 1)
Quarter: 2022Q3

REPORT INFORMATION
  Report Type: Spontaneous
  Country: US (occurrence: US)
  Receive Date: 20220701
  Receipt Date: 20220701
  Transmission Date: 20221027
  Serious: Yes (Hospitalization, Other)
  Sender: FDA-Public Use
  Company Number: US-SA-SAC20220630000623

PATIENT
  Age: 59 Year
  Sex: Male

DRUGS (1)
  1. LUMIZYME [Suspect]
     Active Substance: ALGLUCOSIDASE ALFA
     Indication: Glycogen storage disease type II
     Dosage: 200 MG, QOW
     Route: 042
     Dates: start: 20160419

REACTIONS (4)
  - Femur fracture [Unknown]
  - Hip fracture [Unknown]
  - Fall [Unknown]
  - COVID-19 [Unknown]
